FAERS Safety Report 4273867-8 (Version None)
Quarter: 2004Q1

REPORT INFORMATION
  Report Type: 
  Country: None (occurrence: None)
  Receive Date: 20040115
  Receipt Date: 20031224
  Transmission Date: 20041129
  Serious: Yes (Hospitalization)
  Sender: FDA-Public Use
  Company Number: 7060

PATIENT
  Age: 61 Year
  Sex: Female

DRUGS (7)
  1. LEUCOVORIN CALCIUM [Suspect]
  2. FLUOROURACIL [Suspect]
  3. OXALIPLATIN [Suspect]
  4. EKB-569 [Suspect]
     Indication: COLON CANCER
     Dosage: 25 MG PO
     Route: 048
     Dates: start: 20030422
  5. SUPRADYN [Concomitant]
  6. EMCONCOR COMP [Concomitant]
  7. DYTENZIDE [Concomitant]

REACTIONS (8)
  - C-REACTIVE PROTEIN INCREASED [None]
  - DIARRHOEA [None]
  - FEBRILE NEUTROPENIA [None]
  - HAEMOGLOBIN DECREASED [None]
  - HYPOKALAEMIA [None]
  - LIVER DISORDER [None]
  - METASTASIS [None]
  - STOMATITIS [None]
